FAERS Safety Report 9364820 (Version 1)
Quarter: 2013Q2

REPORT INFORMATION
  Report Type: Spontaneous
  Country: US (occurrence: US)
  Receive Date: 20130624
  Receipt Date: 20130624
  Transmission Date: 20140414
  Serious: Yes (Other)
  Sender: FDA-Public Use
  Company Number: US-PFIZER INC-2013184651

PATIENT
  Age: 63 Year
  Sex: Female
  Weight: 74.83 kg

DRUGS (2)
  1. PREPARATION H [Suspect]
     Indication: HAEMORRHOIDS
     Dosage: UNK
  2. PREPARATION H MAXIMUM STRENGTH [Suspect]
     Indication: HAEMORRHOIDS
     Dosage: UNK, ONCE
     Dates: start: 20130614, end: 20130614

REACTIONS (8)
  - Urinary retention [Unknown]
  - Mobility decreased [Unknown]
  - Drug ineffective [Unknown]
  - Pruritus [Unknown]
  - Burning sensation [Unknown]
  - Rash [Unknown]
  - Erythema [Unknown]
  - Pain [Unknown]
